FAERS Safety Report 9641585 (Version 1)
Quarter: 2013Q4

REPORT INFORMATION
  Report Type: Report from Study
  Country: US (occurrence: US)
  Receive Date: 20131023
  Receipt Date: 20131023
  Transmission Date: 20140711
  Serious: Yes (Other)
  Sender: FDA-Public Use
  Company Number: US-ABBVIE-13P-163-1158729-00

PATIENT
  Age: 49 Year
  Sex: Female

DRUGS (1)
  1. HUMIRA [Suspect]
     Indication: RHEUMATOID ARTHRITIS
     Route: 058
     Dates: start: 201301

REACTIONS (7)
  - Uterine leiomyoma [Recovered/Resolved]
  - Carpal tunnel syndrome [Not Recovered/Not Resolved]
  - Injection site pain [Not Recovered/Not Resolved]
  - Dermal cyst [Unknown]
  - Oral infection [Recovered/Resolved]
  - Contusion [Recovering/Resolving]
  - Endodontic procedure [Recovered/Resolved]
